FAERS Safety Report 24621285 (Version 1)
Quarter: 2024Q4

REPORT INFORMATION
  Report Type: Spontaneous
  Country: BE (occurrence: BE)
  Receive Date: 20241114
  Receipt Date: 20241114
  Transmission Date: 20250115
  Serious: Yes (Other)
  Sender: NOVO NORDISK
  Company Number: BE-NOVOPROD-1318473

PATIENT
  Sex: Male

DRUGS (1)
  1. RYBELSUS [Suspect]
     Active Substance: SEMAGLUTIDE
     Indication: Glucose tolerance impaired
     Dosage: 3 MG, QD

REACTIONS (2)
  - Diarrhoea haemorrhagic [Unknown]
  - Off label use [Unknown]
